FAERS Safety Report 12474519 (Version 2)
Quarter: 2016Q3

REPORT INFORMATION
  Report Type: Report from Study
  Country: GB (occurrence: GB)
  Receive Date: 20160617
  Receipt Date: 20160706
  Transmission Date: 20161109
  Serious: Yes (Hospitalization)
  Sender: FDA-Public Use
  Company Number: GB-ROCHE-1774367

PATIENT
  Age: 56 Year
  Sex: Female
  Weight: 64 kg

DRUGS (20)
  1. BLEPHACLEAN [Concomitant]
     Dosage: 1 APP
     Route: 065
     Dates: start: 201307
  2. GELCLAIR (UNITED KINGDOM) [Concomitant]
     Dosage: 1 SACHET
     Route: 065
     Dates: start: 20160218
  3. OMEPRAZOLE. [Concomitant]
     Active Substance: OMEPRAZOLE
     Route: 065
     Dates: start: 2010
  4. SEVREDOL [Concomitant]
     Active Substance: MORPHINE
     Route: 065
     Dates: start: 20130428
  5. MEGACE [Concomitant]
     Active Substance: MEGESTROL ACETATE
     Route: 065
     Dates: start: 20140506
  6. CLINITAS EYE DROPS [Concomitant]
     Dosage: 1 APP
     Route: 065
     Dates: start: 201307
  7. FLAXSEED [Concomitant]
     Active Substance: FLAX SEED
     Route: 065
     Dates: start: 20151126
  8. TRASTUZUMAB EMTANSINE [Suspect]
     Active Substance: ADO-TRASTUZUMAB EMTANSINE
     Indication: HER-2 POSITIVE BREAST CANCER
     Dosage: DATE OF LAST DOSE PRIOR TO SAE: 02/JUN/2016
     Route: 042
     Dates: start: 20130424, end: 20160608
  9. ADCAL-D3 [Concomitant]
     Active Substance: CALCIUM CARBONATE\CHOLECALCIFEROL
     Dosage: 1 TAB
     Route: 065
     Dates: start: 20140328
  10. AMITRIPTYLINE [Concomitant]
     Active Substance: AMITRIPTYLINE
     Route: 065
     Dates: start: 20140110
  11. COCODAMOL [Concomitant]
     Active Substance: ACETAMINOPHEN\CODEINE PHOSPHATE
     Dosage: 30/500 MG
     Route: 065
     Dates: start: 201301
  12. MST (MORPHINE SULFATE) [Concomitant]
     Route: 065
     Dates: start: 20130829
  13. SENOKOT [Concomitant]
     Active Substance: SENNOSIDES
     Dosage: A SACHET
     Route: 065
     Dates: start: 201303
  14. BUSCOPAN [Concomitant]
     Active Substance: BUTYLSCOPOLAMINE BROMIDE
     Route: 065
     Dates: start: 20141204
  15. DULCOLAX NOS [Concomitant]
     Active Substance: BISACODYL OR DOCUSATE SODIUM
     Route: 065
     Dates: start: 20150404
  16. MAGNESIUM HYDROXIDE. [Concomitant]
     Active Substance: MAGNESIUM HYDROXIDE
     Route: 065
     Dates: start: 20160218
  17. SODIUM BICARBONATE. [Concomitant]
     Active Substance: SODIUM BICARBONATE
     Route: 065
     Dates: start: 20151217
  18. LOSEC [Concomitant]
     Active Substance: OMEPRAZOLE
     Route: 065
     Dates: start: 20140330
  19. CO-DANTHRAMER [Concomitant]
     Active Substance: DANTHRON\POLOXAMER
     Dosage: 2 CAPS
     Route: 065
     Dates: start: 20160421
  20. DEXAMETHASONE. [Concomitant]
     Active Substance: DEXAMETHASONE
     Route: 065
     Dates: start: 20160517

REACTIONS (1)
  - Ataxia [Recovered/Resolved]

NARRATIVE: CASE EVENT DATE: 20160602
